FAERS Safety Report 6874214-5 (Version None)
Quarter: 2010Q3

REPORT INFORMATION
  Report Type: 
  Country: None (occurrence: None)
  Receive Date: 20100723
  Receipt Date: 20090501
  Transmission Date: 20110219
  Serious: Yes (Other)
  Sender: FDA-Public Use
  Company Number: US-PFIZER INC-2009210817

PATIENT
  Sex: Male
  Weight: 76.19 kg

DRUGS (8)
  1. CHANTIX [Suspect]
     Indication: SMOKING CESSATION THERAPY
     Dosage: UNK
     Dates: start: 20090401
  2. LEVOTHYROXINE [Concomitant]
     Dosage: UNK
  3. NORVASC [Concomitant]
     Dosage: UNK
  4. ATENOLOL [Concomitant]
     Dosage: UNK
  5. ZOCOR [Concomitant]
     Dosage: UNK
  6. IBUPROFEN [Concomitant]
     Dosage: UNK
  7. ASPIRIN [Concomitant]
     Dosage: UNK
  8. DRUG, UNSPECIFIED [Concomitant]
     Dosage: UNK

REACTIONS (2)
  - INSOMNIA [None]
  - RESTLESSNESS [None]
